FAERS Safety Report 12286934 (Version 2)
Quarter: 2016Q2

REPORT INFORMATION
  Report Type: Spontaneous
  Country: NL (occurrence: NL)
  Receive Date: 20160420
  Receipt Date: 20160601
  Transmission Date: 20160815
  Serious: Yes (Other)
  Sender: FDA-Public Use
  Company Number: NL-PFIZER INC-2015255935

PATIENT
  Age: 54 Year
  Sex: Female
  Weight: 95 kg

DRUGS (9)
  1. SOMAVERT [Suspect]
     Active Substance: PEGVISOMANT
     Indication: ACROMEGALY
     Dosage: 60 MG, WEEKLY (1X/WEEK)
     Route: 058
     Dates: start: 20071004, end: 20080303
  2. SOMAVERT [Suspect]
     Active Substance: PEGVISOMANT
     Dosage: 60 MG, 2X/WEEK
     Route: 058
     Dates: start: 20100702, end: 20100920
  3. SOMAVERT [Suspect]
     Active Substance: PEGVISOMANT
     Dosage: 100 MG, WEEKLY (1X/WEEK)
     Route: 058
     Dates: start: 20080926, end: 20081214
  4. AMLODIPINE W/HYDROCHLOROTHIAZIDE/VALSARTAN [Concomitant]
     Active Substance: AMLODIPINE BESYLATE\HYDROCHLOROTHIAZIDE\VALSARTAN
     Dosage: 1 DF, 1X/DAY
  5. LANREOTIDE [Concomitant]
     Active Substance: LANREOTIDE
     Dosage: 1 INJECTION ONCE PER 4 WEEKS
  6. SOMAVERT [Suspect]
     Active Substance: PEGVISOMANT
     Dosage: 80 MG, WEEKLY (1X/WEEK)
     Route: 058
     Dates: start: 20080304, end: 20080925
  7. SOMAVERT [Suspect]
     Active Substance: PEGVISOMANT
     Dosage: 60 MG, 2X/WEEK
     Route: 058
     Dates: start: 20110401
  8. SOMAVERT [Suspect]
     Active Substance: PEGVISOMANT
     Dosage: 50 MG, 2X/WEEK
     Route: 058
     Dates: start: 20081215, end: 20100701
  9. SOMAVERT [Suspect]
     Active Substance: PEGVISOMANT
     Dosage: 80 MG, 2X/WEEK
     Route: 058
     Dates: start: 20100921, end: 20110331

REACTIONS (3)
  - Type 2 diabetes mellitus [Not Recovered/Not Resolved]
  - Overweight [Recovering/Resolving]
  - Off label use [Not Recovered/Not Resolved]

NARRATIVE: CASE EVENT DATE: 2007
